FAERS Safety Report 18242343 (Version 2)
Quarter: 2020Q3

REPORT INFORMATION
  Report Type: Spontaneous
  Country: FR (occurrence: FR)
  Receive Date: 20200908
  Receipt Date: 20200909
  Transmission Date: 20201103
  Serious: Yes (Hospitalization, Other)
  Sender: FDA-Public Use
  Company Number: FR-PFIZER INC-2020345638

PATIENT
  Age: 81 Year
  Sex: Male

DRUGS (14)
  1. RAMIPRIL. [Suspect]
     Active Substance: RAMIPRIL
     Indication: MYOCARDIAL ISCHAEMIA
     Dosage: 1.25 MG, ONCE DAILY
     Route: 048
     Dates: end: 20200307
  2. INSULATARD HUMAN [Concomitant]
     Active Substance: INSULIN HUMAN
     Dosage: 20 IU, 1X/DAY
  3. TANGANIL [Concomitant]
     Active Substance: ACETYLLEUCINE
     Dosage: 3 DF, 1X/DAY
     Route: 048
  4. DUROGESIC [Concomitant]
     Active Substance: FENTANYL
     Dosage: 1 DF, CYCLIC 1 FOR 3 DAYS
     Route: 062
  5. VENLAFAXINE [Concomitant]
     Active Substance: VENLAFAXINE HYDROCHLORIDE
     Dosage: 37.5 MG, 1X/DAY
     Route: 048
  6. BIOSYNTHETIC HUMAN INSULIN [Concomitant]
     Active Substance: INSULIN HUMAN
     Dosage: 20 IU, 1X/DAY
     Route: 058
  7. BISOPROLOL [BISOPROLOL FUMARATE] [Concomitant]
     Active Substance: BISOPROLOL FUMARATE
     Dosage: 2.5 MG, 1X/DAY
     Route: 048
  8. FUROSEMIDE. [Concomitant]
     Active Substance: FUROSEMIDE
     Dosage: 40 MG, 1X/DAY
     Route: 048
  9. LASILIX SPECIAL [FUROSEMIDE] [Concomitant]
     Active Substance: FUROSEMIDE
     Dosage: 0.25 DF, 1X/DAY
     Route: 048
  10. EUTHYRAL [Concomitant]
     Active Substance: LEVOTHYROXINE SODIUM\LIOTHYRONINE SODIUM
     Dosage: 1 DF, 1X/DAY
     Route: 048
  11. LANSOPRAZOLE. [Concomitant]
     Active Substance: LANSOPRAZOLE
     Dosage: 15 MG, 1X/DAY
     Route: 048
  12. VFEND [Suspect]
     Active Substance: VORICONAZOLE
     Indication: ASPERGILLUS INFECTION
     Dosage: 1 DF, ONCE DAILY
     Route: 048
     Dates: start: 20200224, end: 20200307
  13. DUROGESIC [Concomitant]
     Active Substance: FENTANYL
     Dosage: 1 DF, CYCLIC 1 FOR 3 DAYS
     Route: 062
  14. KARDEGIC [Concomitant]
     Active Substance: ASPIRIN DL-LYSINE
     Dosage: 1 DF, 1X/DAY
     Route: 048

REACTIONS (5)
  - Hallucination, visual [Recovered/Resolved]
  - Acute kidney injury [Recovering/Resolving]
  - Confusional state [Recovered/Resolved]
  - Off label use [Unknown]
  - Condition aggravated [Recovered/Resolved]

NARRATIVE: CASE EVENT DATE: 20200224
